FAERS Safety Report 24121268 (Version 1)
Quarter: 2024Q3

REPORT INFORMATION
  Report Type: Report from Study
  Country: US (occurrence: None)
  Receive Date: 20240722
  Receipt Date: 20240722
  Transmission Date: 20241017
  Serious: Yes (Other)
  Sender: ASTRAZENECA
  Company Number: 2021A177626

PATIENT
  Sex: Male

DRUGS (1)
  1. FASENRA [Suspect]
     Active Substance: BENRALIZUMAB
     Indication: Asthma
     Route: 058
     Dates: start: 20210303, end: 20210303

REACTIONS (5)
  - Syncope [Unknown]
  - Fall [Unknown]
  - Swelling [Unknown]
  - Tongue biting [Unknown]
  - Head injury [Unknown]
